FAERS Safety Report 10089626 (Version 1)
Quarter: 2014Q2

REPORT INFORMATION
  Report Type: Spontaneous
  Country: US (occurrence: US)
  Receive Date: 20140421
  Receipt Date: 20140421
  Transmission Date: 20141212
  Serious: No
  Sender: FDA-Public Use
  Company Number: US-DRREDDYS-USA/USA/14/0039222

PATIENT
  Age: 17 Year
  Sex: Male
  Weight: 88.45 kg

DRUGS (2)
  1. ZENATANE [Suspect]
     Indication: ACNE
     Route: 048
     Dates: start: 20140113, end: 201402
  2. ZENATANE [Suspect]
     Dosage: 20MG IN THE MORNING/40 MG IN THE EVENING
     Route: 048
     Dates: start: 201402

REACTIONS (3)
  - Dry skin [Recovered/Resolved]
  - Dry eye [Recovered/Resolved]
  - Fatigue [Recovered/Resolved]
